FAERS Safety Report 16133394 (Version 1)
Quarter: 2019Q1

REPORT INFORMATION
  Report Type: Spontaneous
  Country: US (occurrence: US)
  Receive Date: 20190329
  Receipt Date: 20190329
  Transmission Date: 20190418
  Serious: No
  Sender: FDA-Public Use
  Company Number: US-ASTRAZENECA-2019SE46601

PATIENT
  Age: 76 Year
  Sex: Female
  Weight: 102.1 kg

DRUGS (7)
  1. BRILINTA [Suspect]
     Active Substance: TICAGRELOR
     Indication: MYOCARDIAL INFARCTION
     Route: 048
     Dates: start: 20180224
  2. LEVOTHYROXINE. [Concomitant]
     Active Substance: LEVOTHYROXINE
     Indication: THYROID DISORDER
     Route: 048
  3. METOPROLOL SUCCINATE. [Suspect]
     Active Substance: METOPROLOL SUCCINATE
     Indication: BLOOD PRESSURE MEASUREMENT
     Route: 048
     Dates: start: 20180224
  4. BRILINTA [Suspect]
     Active Substance: TICAGRELOR
     Indication: STENT PLACEMENT
     Route: 048
     Dates: start: 20180224
  5. AMLODIPINE [Concomitant]
     Active Substance: AMLODIPINE BESYLATE
     Indication: BLOOD PRESSURE MEASUREMENT
     Route: 048
     Dates: start: 20180224
  6. LOVASTATIN. [Concomitant]
     Active Substance: LOVASTATIN
     Indication: STENT PLACEMENT
     Route: 048
  7. ASPIRIN. [Concomitant]
     Active Substance: ASPIRIN
     Indication: ILL-DEFINED DISORDER
     Route: 048
     Dates: start: 20180224

REACTIONS (8)
  - Feeling abnormal [Unknown]
  - Pain [Unknown]
  - Musculoskeletal discomfort [Unknown]
  - Adverse event [Unknown]
  - Dehydration [Unknown]
  - Tension [Unknown]
  - Muscle spasms [Unknown]
  - Scar [Unknown]

NARRATIVE: CASE EVENT DATE: 201902
